FAERS Safety Report 7091515-9 (Version None)
Quarter: 2010Q4

REPORT INFORMATION
  Report Type: 
  Country: None (occurrence: None)
  Receive Date: 20101109
  Receipt Date: 20101025
  Transmission Date: 20110411
  Serious: Yes (Other)
  Sender: FDA-Public Use
  Company Number: US-PFIZER INC-001-0981-981231

PATIENT
  Sex: Male
  Weight: 31.751 kg

DRUGS (10)
  1. LIPITOR [Interacting]
     Indication: HYPERCHOLESTEROLAEMIA
     Dosage: 10 MG, 1X/DAY
     Route: 048
     Dates: start: 19980209
  2. LIPITOR [Interacting]
     Dosage: 40 MG, 1X/DAY
     Dates: end: 20100901
  3. GABAPENTIN [Suspect]
     Indication: NEUROPATHY PERIPHERAL
     Dosage: 300 MG, 2X/DAY
  4. GABAPENTIN [Suspect]
     Dosage: FREQUENCY: 2X/DAY,
     Dates: end: 20090101
  5. PROTONIX [Interacting]
     Indication: GASTROOESOPHAGEAL REFLUX DISEASE
     Dosage: 40 MG, 1X/DAY
  6. PRILOSEC [Suspect]
     Indication: GASTROOESOPHAGEAL REFLUX DISEASE
     Dates: start: 20100101, end: 20100101
  7. VITAMIN B [Interacting]
     Indication: NEUROPATHY PERIPHERAL
     Dosage: UNK
  8. ASPIRIN [Concomitant]
  9. FINASTERIDE [Concomitant]
     Indication: PROSTATIC DISORDER
     Dosage: UNK
  10. DOXAZOSIN [Concomitant]
     Indication: PROSTATIC DISORDER
     Dosage: UNK

REACTIONS (7)
  - ARTHRALGIA [None]
  - DRUG DOSE OMISSION [None]
  - DRUG INEFFECTIVE [None]
  - DRUG INTERACTION [None]
  - FLATULENCE [None]
  - MYALGIA [None]
  - NEUROPATHY PERIPHERAL [None]
